FAERS Safety Report 23798797 (Version 1)
Quarter: 2024Q2

REPORT INFORMATION
  Report Type: Spontaneous
  Country: IT (occurrence: IT)
  Receive Date: 20240430
  Receipt Date: 20240430
  Transmission Date: 20240716
  Serious: Yes (Hospitalization, Other)
  Sender: FDA-Public Use
  Company Number: None

PATIENT
  Age: 78 Year
  Sex: Female

DRUGS (13)
  1. ENOXAPARIN [Interacting]
     Active Substance: ENOXAPARIN
     Indication: Deep vein thrombosis
     Dosage: 6000 INTERNATIONAL UNIT, BID
     Route: 058
     Dates: start: 20240113, end: 20240125
  2. QUETIAPINE [Interacting]
     Active Substance: QUETIAPINE
     Indication: Mixed anxiety and depressive disorder
     Dosage: 150 MILLIGRAM, QD (150 MG SUSTAINED RELEASE/DAY)
     Route: 048
  3. OLANZAPINE [Interacting]
     Active Substance: OLANZAPINE
     Indication: Mixed anxiety and depressive disorder
     Dosage: 5 MILLIGRAM, QD
     Route: 048
  4. SULFASALAZINE [Interacting]
     Active Substance: SULFASALAZINE
     Indication: Arthropathy
     Dosage: 2000 MILLIGRAM, QD (4 TABLETS 500 MG/DAY)
     Route: 048
  5. METHYLPREDNISOLONE [Concomitant]
     Active Substance: METHYLPREDNISOLONE
     Indication: Arthropathy
     Dosage: 0.5 MILLIGRAM, QD
     Route: 048
  6. XANAX [Concomitant]
     Active Substance: ALPRAZOLAM
     Dosage: UNK
     Route: 048
  7. AUGMENTIN [Concomitant]
     Active Substance: AMOXICILLIN\CLAVULANATE POTASSIUM
     Indication: Cellulitis
     Dosage: 1 GRAM
     Route: 048
  8. NALOXONE HYDROCHLORIDE\OXYCODONE HYDROCHLORIDE [Concomitant]
     Active Substance: NALOXONE HYDROCHLORIDE\OXYCODONE HYDROCHLORIDE
     Indication: Pain
     Dosage: 5 MILLIGRAM, BID (5 MG X 2/DAY)
     Route: 048
     Dates: start: 20240118
  9. Folina [Concomitant]
     Dosage: UNK
     Route: 065
  10. METHOTREXATE (METHOTREXATE SODIUM) [Concomitant]
     Active Substance: METHOTREXATE SODIUM
     Indication: Arthropathy
     Dosage: 2.5 MILLIGRAM, Q8H (1 TABLET AFTER BREAKFAST, LUNCH AND DINNER ONE DAY A WEEK)
     Route: 048
  11. CANRENOATE POTASSIUM [Concomitant]
     Active Substance: CANRENOATE POTASSIUM
     Dosage: UNK
     Route: 048
  12. ACETAMINOPHEN [Concomitant]
     Active Substance: ACETAMINOPHEN
     Indication: Pain
     Dosage: 1000 MILLIGRAM
     Route: 065
  13. CHOLECALCIFEROL [Concomitant]
     Active Substance: CHOLECALCIFEROL
     Dosage: UNK
     Route: 065

REACTIONS (2)
  - Thrombocytopenia [Recovered/Resolved]
  - Drug interaction [Recovered/Resolved]

NARRATIVE: CASE EVENT DATE: 20240122
